FAERS Safety Report 5298932-8 (Version None)
Quarter: 2007Q2

REPORT INFORMATION
  Report Type: 
  Country: None (occurrence: None)
  Receive Date: 20070417
  Receipt Date: 20070405
  Transmission Date: 20071010
  Serious: Yes (Other)
  Sender: FDA-Public Use
  Company Number: PHBS2007CH06042

PATIENT
  Sex: Male

DRUGS (2)
  1. ZOMETA [Suspect]
     Dosage: 4 MG/MONTH
     Dates: start: 20051101, end: 20061201
  2. LUCRIN [Concomitant]
     Dosage: 15 MG/MONTH
     Dates: start: 20050301

REACTIONS (3)
  - ACTINOMYCOSIS [None]
  - OSTEOMYELITIS [None]
  - OSTEONECROSIS [None]
